FAERS Safety Report 4715088-8 (Version None)
Quarter: 2005Q3

REPORT INFORMATION
  Report Type: 
  Country: None (occurrence: None)
  Receive Date: 20050715
  Receipt Date: 20050310
  Transmission Date: 20060218
  Serious: Yes (Hospitalization, Disabling)
  Sender: FDA-Public Use
  Company Number: US-MERCK-0503USA02327

PATIENT
  Age: 58 Year
  Sex: Male
  Weight: 117 kg

DRUGS (8)
  1. VIOXX [Suspect]
     Indication: MONARTHRITIS
     Route: 048
     Dates: start: 19980101, end: 20030801
  2. PRILOSEC [Concomitant]
     Route: 065
  3. TENORMIN [Concomitant]
     Indication: BLOOD PRESSURE
     Route: 065
     Dates: start: 19850101
  4. ASPIRIN [Concomitant]
     Route: 065
  5. PAXIL [Concomitant]
     Route: 065
  6. NORVASC [Concomitant]
     Route: 065
  7. TOBRADEX [Concomitant]
     Route: 065
  8. CLARINEX [Concomitant]
     Route: 065

REACTIONS (12)
  - ACUTE MYOCARDIAL INFARCTION [None]
  - ANXIETY [None]
  - CARDIAC VALVE DISEASE [None]
  - CHEST PAIN [None]
  - CHEST WALL PAIN [None]
  - CORONARY ARTERY DISEASE [None]
  - FLUID RETENTION [None]
  - GASTROOESOPHAGEAL REFLUX DISEASE [None]
  - HEADACHE [None]
  - HYPERLIPIDAEMIA [None]
  - INFECTION [None]
  - MUSCULOSKELETAL CHEST PAIN [None]
